FAERS Safety Report 6218203-2 (Version None)
Quarter: 2009Q2

REPORT INFORMATION
  Report Type: 
  Country: None (occurrence: None)
  Receive Date: 20090608
  Receipt Date: 20090604
  Transmission Date: 20091009
  Serious: Yes (Hospitalization)
  Sender: FDA-Public Use
  Company Number: US-B.I. PHARMACEUTICALS,INC./RIDGEFIELD-2008-BP-18218BP

PATIENT
  Age: 76 Year
  Sex: Female

DRUGS (4)
  1. ATROVENT HFA [Suspect]
     Indication: EMPHYSEMA
     Dosage: 102MCG
     Route: 055
     Dates: start: 19880101
  2. SYNTHROID [Concomitant]
     Indication: HYPOTHYROIDISM
     Dates: start: 19510101
  3. ALDACTAZIDE [Concomitant]
     Indication: HYPERTENSION
     Dates: start: 19720101
  4. MEDICINE OF UNKNOWN NAME [Concomitant]
     Indication: HYPERTENSION

REACTIONS (4)
  - CEREBROVASCULAR ACCIDENT [None]
  - DRUG INEFFECTIVE [None]
  - INSOMNIA [None]
  - SPEECH DISORDER [None]
